FAERS Safety Report 15751292 (Version 4)
Quarter: 2025Q2

REPORT INFORMATION
  Report Type: Other
  Country: CA (occurrence: CA)
  Receive Date: 20181221
  Receipt Date: 20250403
  Transmission Date: 20250717
  Serious: Yes (Death, Other)
  Sender: PFIZER
  Company Number: CA-PFIZER INC-2018521630

PATIENT

DRUGS (13)
  1. LABETALOL HYDROCHLORIDE [Suspect]
     Active Substance: LABETALOL HYDROCHLORIDE
     Indication: Hypertension
     Route: 064
  2. MAGNESIUM SULFATE [Suspect]
     Active Substance: MAGNESIUM SULFATE
     Route: 064
  3. DEXTROSE [Suspect]
     Active Substance: DEXTROSE MONOHYDRATE
     Route: 064
  4. CALCIUM GLUCONATE [Suspect]
     Active Substance: CALCIUM GLUCONATE
     Route: 064
  5. SODIUM BICARBONATE [Suspect]
     Active Substance: SODIUM BICARBONATE
     Route: 064
  6. FOLIC ACID [Suspect]
     Active Substance: FOLIC ACID
     Route: 064
  7. HYDRALAZINE [Suspect]
     Active Substance: HYDRALAZINE HYDROCHLORIDE
     Indication: Hypertension
     Route: 064
  8. HYDRALAZINE [Suspect]
     Active Substance: HYDRALAZINE HYDROCHLORIDE
     Route: 064
  9. MISOPROSTOL [Suspect]
     Active Substance: MISOPROSTOL
     Route: 064
  10. NIFEDIPINE [Suspect]
     Active Substance: NIFEDIPINE
     Indication: Hypertension
     Route: 064
  11. OXYTOCIN [Suspect]
     Active Substance: OXYTOCIN
     Route: 064
  12. ALBUTEROL SULFATE [Suspect]
     Active Substance: ALBUTEROL SULFATE
     Route: 064
  13. ERGOCALCIFEROL [Suspect]
     Active Substance: ERGOCALCIFEROL
     Route: 064

REACTIONS (5)
  - Foetal death [Fatal]
  - Condition aggravated [Fatal]
  - Foetal exposure during pregnancy [Fatal]
  - Small for dates baby [Fatal]
  - Vascular resistance systemic increased [Fatal]
